FAERS Safety Report 16258926 (Version 1)
Quarter: 2019Q2

REPORT INFORMATION
  Report Type: Spontaneous
  Country: US (occurrence: US)
  Receive Date: 20190501
  Receipt Date: 20190501
  Transmission Date: 20190711
  Serious: Yes (Hospitalization, Other)
  Sender: FDA-Public Use
  Company Number: US-BION-007979

PATIENT
  Age: 26 Year
  Sex: Male

DRUGS (1)
  1. LOPERAMIDE HYDROCHLORIDE. [Suspect]
     Active Substance: LOPERAMIDE HYDROCHLORIDE
     Dosage: 150 PILLS PER DAY, EACH CONTAINING 2 MG OF LOPERAMIDE OVER THE PAST 8 MONTHS

REACTIONS (8)
  - Cardio-respiratory arrest [Recovered/Resolved]
  - Torsade de pointes [Recovered/Resolved]
  - Dizziness [Recovered/Resolved]
  - Overdose [Unknown]
  - Syncope [Recovered/Resolved]
  - Brugada syndrome [Recovered/Resolved]
  - Drug abuse [Unknown]
  - Electrocardiogram QT prolonged [Recovered/Resolved]
